FAERS Safety Report 25355185 (Version 6)
Quarter: 2025Q3

REPORT INFORMATION
  Report Type: Spontaneous
  Country: US (occurrence: US)
  Receive Date: 20250524
  Receipt Date: 20250806
  Transmission Date: 20251021
  Serious: Yes (Other)
  Sender: UNITED THERAPEUTICS
  Company Number: US-UNITED THERAPEUTICS-UNT-2025-014142

PATIENT
  Age: 76 Year
  Sex: Female
  Weight: 61.95 kg

DRUGS (23)
  1. TYVASO DPI [Suspect]
     Active Substance: TREPROSTINIL
     Indication: Pulmonary arterial hypertension
     Dosage: 96 ?G, QID (64?G+32?G)
  2. TYVASO DPI [Suspect]
     Active Substance: TREPROSTINIL
     Indication: Connective tissue disorder
     Dosage: 32 ?G, QID
  3. TYVASO DPI [Suspect]
     Active Substance: TREPROSTINIL
     Dosage: 96 ?G (64?G + 32?G), QID
  4. TYVASO DPI [Suspect]
     Active Substance: TREPROSTINIL
  5. TYVASO DPI [Suspect]
     Active Substance: TREPROSTINIL
     Indication: Pulmonary arterial hypertension
  6. TYVASO DPI [Suspect]
     Active Substance: TREPROSTINIL
     Indication: Connective tissue disorder
  7. TYVASO DPI [Suspect]
     Active Substance: TREPROSTINIL
     Indication: Pulmonary arterial hypertension
  8. TYVASO DPI [Suspect]
     Active Substance: TREPROSTINIL
     Indication: Connective tissue disorder
  9. OXYGEN [Suspect]
     Active Substance: OXYGEN
     Indication: Product used for unknown indication
  10. SOTATERCEPT [Suspect]
     Active Substance: SOTATERCEPT
     Indication: Product used for unknown indication
  11. SOTATERCEPT [Suspect]
     Active Substance: SOTATERCEPT
  12. AMLODIPINE BESYLATE [Concomitant]
     Active Substance: AMLODIPINE BESYLATE
     Indication: Product used for unknown indication
  13. VITAMIN D3 [Concomitant]
     Active Substance: CHOLECALCIFEROL
     Indication: Product used for unknown indication
  14. OPSUMIT [Concomitant]
     Active Substance: MACITENTAN
     Indication: Product used for unknown indication
  15. LASIX [Concomitant]
     Active Substance: FUROSEMIDE
     Indication: Product used for unknown indication
  16. CLARITIN [Concomitant]
     Active Substance: LORATADINE
     Indication: Product used for unknown indication
  17. LEVOTHYROXINE SODIUM [Concomitant]
     Active Substance: LEVOTHYROXINE SODIUM
     Indication: Product used for unknown indication
  18. OMEPRAZOLE [Concomitant]
     Active Substance: OMEPRAZOLE
     Indication: Product used for unknown indication
  19. IBUPROFEN [Concomitant]
     Active Substance: IBUPROFEN
     Indication: Product used for unknown indication
  20. ASPIRIN [Concomitant]
     Active Substance: ASPIRIN
     Indication: Product used for unknown indication
  21. OXYCODONE AND ACETAMINOPHEN [Concomitant]
     Active Substance: ACETAMINOPHEN\OXYCODONE HYDROCHLORIDE
     Indication: Product used for unknown indication
  22. DOXYCYCLINE HYCLATE [Concomitant]
     Active Substance: DOXYCYCLINE HYCLATE
     Indication: Pneumonia
  23. CEFDINIR [Concomitant]
     Active Substance: CEFDINIR
     Indication: Pneumonia

REACTIONS (22)
  - Pneumonia [Recovered/Resolved]
  - Rheumatoid arthritis [Not Recovered/Not Resolved]
  - Dry mouth [Unknown]
  - Nasal discomfort [Unknown]
  - Oral discomfort [Unknown]
  - Epistaxis [Not Recovered/Not Resolved]
  - Upper respiratory tract infection [Unknown]
  - Headache [Unknown]
  - Productive cough [Not Recovered/Not Resolved]
  - Dizziness postural [Unknown]
  - Oedema peripheral [Unknown]
  - Insomnia [Unknown]
  - Oropharyngeal pain [Unknown]
  - Candida infection [Unknown]
  - Pain [Unknown]
  - Wheezing [Unknown]
  - Blood pressure fluctuation [Unknown]
  - Respiratory tract congestion [Unknown]
  - Sputum discoloured [Unknown]
  - Cough [Unknown]
  - Therapy non-responder [Unknown]
  - Device malfunction [Unknown]

NARRATIVE: CASE EVENT DATE: 20250419
